FAERS Safety Report 13381315 (Version 1)
Quarter: 2017Q1

REPORT INFORMATION
  Report Type: Spontaneous
  Country: US (occurrence: US)
  Receive Date: 20170329
  Receipt Date: 20170329
  Transmission Date: 20170429
  Serious: No
  Sender: FDA-Public Use
  Company Number: US-TEVA-664010USA

PATIENT
  Sex: Female
  Weight: 99.88 kg

DRUGS (1)
  1. SUCRALFATE. [Suspect]
     Active Substance: SUCRALFATE
     Indication: GASTRIC PH DECREASED
     Route: 048

REACTIONS (3)
  - Abdominal pain upper [Unknown]
  - Wrong technique in product usage process [Unknown]
  - Feeling abnormal [Unknown]
